FAERS Safety Report 14289626 (Version 1)
Quarter: 2017Q4

REPORT INFORMATION
  Report Type: Spontaneous
  Country: US (occurrence: None)
  Receive Date: 20171214
  Receipt Date: 20171214
  Transmission Date: 20180321
  Serious: Yes (Hospitalization)
  Sender: FDA-Public Use
  Company Number: None

PATIENT
  Age: 50 Year
  Sex: Female
  Weight: 79 kg

DRUGS (1)
  1. INSULIN [Suspect]
     Active Substance: INSULIN NOS
     Indication: DIABETES MELLITUS
     Dosage: 27 UNITS HS SQ
     Route: 058
     Dates: start: 20120731

REACTIONS (3)
  - Fat necrosis [None]
  - Wrong technique in product usage process [None]
  - Cellulitis [None]

NARRATIVE: CASE EVENT DATE: 20170605
